FAERS Safety Report 8048895 (Version 3)
Quarter: 2014Q1

REPORT INFORMATION
  Report Type: Spontaneous
  Country: US (occurrence: US)
  Receive Date: 20110722
  Receipt Date: 20140310
  Transmission Date: 20141002
  Serious: Yes (Hospitalization)
  Sender: FDA-Public Use
  Company Number: US-JNJFOC-20110705297

PATIENT
  Age: 65 Year
  Sex: Male

DRUGS (14)
  1. REMICADE [Suspect]
     Indication: COLITIS ULCERATIVE
     Route: 042
  2. IPILIMUMAB [Suspect]
     Indication: MALIGNANT MELANOMA
     Route: 042
     Dates: start: 20101008, end: 20101008
  3. CARVEDILOL [Concomitant]
     Route: 065
  4. DIGOXIN [Concomitant]
     Route: 065
  5. LASIX [Concomitant]
     Route: 065
  6. WARFARIN [Concomitant]
     Route: 065
  7. LIPITOR [Concomitant]
     Route: 065
  8. ACECOL [Concomitant]
     Route: 065
  9. LACTOBACILLUS [Concomitant]
     Route: 065
  10. LANTUS [Concomitant]
     Route: 065
  11. HUMALOG [Concomitant]
     Route: 065
  12. METOPROLOL [Concomitant]
     Route: 065
     Dates: start: 201010
  13. COUMADIN [Concomitant]
     Route: 065
     Dates: start: 201010
  14. LISINOPRIL [Concomitant]
     Route: 065

REACTIONS (2)
  - Cardiac failure congestive [Recovered/Resolved]
  - Atrial fibrillation [Unknown]
